FAERS Safety Report 7531534-9 (Version None)
Quarter: 2011Q2

REPORT INFORMATION
  Report Type: 
  Country: None (occurrence: None)
  Receive Date: 20110608
  Receipt Date: 20110525
  Transmission Date: 20111010
  Serious: Yes (Other)
  Sender: FDA-Public Use
  Company Number: PHHY2011TH45584

PATIENT
  Age: 10 Year
  Sex: Male

DRUGS (9)
  1. PREDNISOLONE [Concomitant]
     Indication: GRAFT VERSUS HOST DISEASE
     Dosage: 1 MG/KG/DAY
  2. MYCOPHENOLATE MEFETIL [Concomitant]
     Dosage: 50 MG/KG/DAY
  3. METHOTREXATE [Concomitant]
     Indication: GRAFT VERSUS HOST DISEASE
  4. ALBUMIN NOS [Concomitant]
     Dosage: 5 %
  5. CYCLOPHOSPHAMIDE [Concomitant]
     Dosage: 50 MG/KG
  6. CYCLOSPORINE [Suspect]
     Indication: PROPHYLAXIS AGAINST GRAFT VERSUS HOST DISEASE
  7. TACOLIMUS [Concomitant]
     Dosage: 0.25MG/KG/DAY
  8. BUSULFAN [Concomitant]
     Dosage: 4 MG/KG
  9. PLASMA [Concomitant]
     Dosage: ONE UNIT

REACTIONS (23)
  - CEREBRAL INFARCTION [None]
  - ORAL LICHEN PLANUS [None]
  - WHITE BLOOD CELL COUNT DECREASED [None]
  - ANTIPHOSPHOLIPID ANTIBODIES POSITIVE [None]
  - COMPLEMENT FACTOR C3 DECREASED [None]
  - ACUTE GRAFT VERSUS HOST DISEASE IN SKIN [None]
  - PYREXIA [None]
  - APHASIA [None]
  - ACUTE GRAFT VERSUS HOST DISEASE IN LIVER [None]
  - CONFUSIONAL STATE [None]
  - ASPARTATE AMINOTRANSFERASE INCREASED [None]
  - C-REACTIVE PROTEIN INCREASED [None]
  - THROMBOCYTOPENIA [None]
  - ANTINUCLEAR ANTIBODY POSITIVE [None]
  - BLOOD HOMOCYSTEINE INCREASED [None]
  - CHRONIC GRAFT VERSUS HOST DISEASE [None]
  - ALANINE AMINOTRANSFERASE INCREASED [None]
  - ANTIPHOSPHOLIPID SYNDROME [None]
  - HEADACHE [None]
  - COMPLEX PARTIAL SEIZURES [None]
  - GRAND MAL CONVULSION [None]
  - ENCEPHALOMALACIA [None]
  - DELIRIUM [None]
